FAERS Safety Report 8450491-4 (Version None)
Quarter: 2012Q2

REPORT INFORMATION
  Report Type: 
  Country: None (occurrence: None)
  Receive Date: 20120620
  Receipt Date: 20120611
  Transmission Date: 20120825
  Serious: Yes (Other)
  Sender: FDA-Public Use
  Company Number: US-SANOFI-AVENTIS-2012SA041815

PATIENT
  Age: 86 Year
  Sex: Female

DRUGS (2)
  1. MULTAQ [Suspect]
     Indication: ATRIAL FIBRILLATION
     Route: 048
     Dates: start: 20100101
  2. TOPROL-XL [Suspect]
     Route: 065

REACTIONS (4)
  - OBSTRUCTIVE AIRWAYS DISORDER [None]
  - HEART RATE INCREASED [None]
  - MEMORY IMPAIRMENT [None]
  - HEADACHE [None]
